FAERS Safety Report 24026030 (Version 3)
Quarter: 2024Q3

REPORT INFORMATION
  Report Type: Report from Study
  Country: US (occurrence: US)
  Receive Date: 20240628
  Receipt Date: 20240830
  Transmission Date: 20241017
  Serious: No
  Sender: CHATTEM
  Company Number: US-SA-SAC20240607000447

PATIENT
  Age: 30 Year
  Sex: Male

DRUGS (1)
  1. ALLEGRA [Suspect]
     Active Substance: FEXOFENADINE HYDROCHLORIDE
     Indication: Hypersensitivity
     Route: 048

REACTIONS (1)
  - Somnolence [Recovered/Resolved]
